FAERS Safety Report 9281283 (Version 1)
Quarter: 2013Q2

REPORT INFORMATION
  Report Type: Spontaneous
  Country: BR (occurrence: BR)
  Receive Date: 20130509
  Receipt Date: 20130509
  Transmission Date: 20140414
  Serious: Yes (Other)
  Sender: FDA-Public Use
  Company Number: BR-BAYER-2013-056554

PATIENT
  Age: 27 Year
  Sex: Female
  Weight: 49.89 kg

DRUGS (1)
  1. YAZ (24) [Suspect]
     Indication: OVARIAN CYST
     Dosage: UNK
     Route: 048
     Dates: start: 20130429

REACTIONS (6)
  - Off label use [None]
  - Syncope [Recovered/Resolved]
  - Vomiting [Not Recovered/Not Resolved]
  - Nausea [Not Recovered/Not Resolved]
  - Diarrhoea [Not Recovered/Not Resolved]
  - Dizziness [Not Recovered/Not Resolved]
